FAERS Safety Report 6409885-0 (Version None)
Quarter: 2009Q4

REPORT INFORMATION
  Report Type: 
  Country: None (occurrence: None)
  Receive Date: 20091022
  Receipt Date: 20091016
  Transmission Date: 20100525
  Serious: Yes (Hospitalization, Other)
  Sender: FDA-Public Use
  Company Number: US-TEVA-209613USA

PATIENT
  Sex: Male

DRUGS (1)
  1. METHYLPREDNISOLONE TABLET 4MG [Suspect]

REACTIONS (2)
  - MUSCULAR WEAKNESS [None]
  - SPINAL CORD INFARCTION [None]
